FAERS Safety Report 12204451 (Version 1)
Quarter: 2016Q1

REPORT INFORMATION
  Report Type: Spontaneous
  Country: US (occurrence: None)
  Receive Date: 20160322
  Receipt Date: 20160322
  Transmission Date: 20160526
  Serious: No
  Sender: FDA-Public Use
  Company Number: None

PATIENT
  Sex: Female

DRUGS (3)
  1. CORTICOSTEROID [Suspect]
     Active Substance: CORTICOSTEROID NOS
  2. TRULICITY [Suspect]
     Active Substance: DULAGLUTIDE
  3. HUMALOG [Suspect]
     Active Substance: INSULIN LISPRO

REACTIONS (1)
  - Blood glucose increased [None]
